FAERS Safety Report 15569408 (Version 1)
Quarter: 2018Q4

REPORT INFORMATION
  Report Type: Spontaneous
  Country: US (occurrence: US)
  Receive Date: 20181030
  Receipt Date: 20181030
  Transmission Date: 20190205
  Serious: No
  Sender: FDA-Public Use
  Company Number: None

PATIENT

DRUGS (1)
  1. AIMOVIG [Suspect]
     Active Substance: ERENUMAB-AOOE

REACTIONS (5)
  - Fatigue [None]
  - Insomnia [None]
  - Anxiety [None]
  - Constipation [None]
  - Nausea [None]
